FAERS Safety Report 13417761 (Version 2)
Quarter: 2017Q2

REPORT INFORMATION
  Report Type: Spontaneous
  Country: JP (occurrence: JP)
  Receive Date: 20170406
  Receipt Date: 20170427
  Transmission Date: 20170830
  Serious: Yes (Hospitalization, Other)
  Sender: FDA-Public Use
  Company Number: PHJP2016JP032895

PATIENT
  Age: 65 Year
  Sex: Female
  Weight: 44 kg

DRUGS (35)
  1. CYCLOPHOSPHAMID [Suspect]
     Active Substance: CYCLOPHOSPHAMIDE
     Indication: DERMATOMYOSITIS
     Dosage: UNK
     Route: 042
     Dates: start: 20151214, end: 20160509
  2. PREDNISOLON [Suspect]
     Active Substance: PREDNISOLONE
     Dosage: 25 MG, UNK
     Route: 048
     Dates: start: 20160525, end: 20160607
  3. PREDNISOLON [Suspect]
     Active Substance: PREDNISOLONE
     Dosage: 12 MG, UNK
     Route: 048
     Dates: start: 20161129
  4. TOFACITINIB CITRATE [Suspect]
     Active Substance: TOFACITINIB CITRATE
     Dosage: 5 MG, QD
     Route: 048
     Dates: start: 20160526, end: 20160629
  5. PREDNISOLON [Suspect]
     Active Substance: PREDNISOLONE
     Dosage: 50 MG, UNK
     Route: 048
     Dates: start: 20160125, end: 20160209
  6. PREDNISOLON [Suspect]
     Active Substance: PREDNISOLONE
     Dosage: 16 MG, UNK
     Route: 048
     Dates: start: 20160829, end: 20161002
  7. DIART [Concomitant]
     Active Substance: AZOSEMIDE
     Indication: PRODUCT USED FOR UNKNOWN INDICATION
     Dosage: UNK
     Route: 065
     Dates: start: 20160106
  8. MYSLEE [Concomitant]
     Active Substance: ZOLPIDEM TARTRATE
     Indication: PRODUCT USED FOR UNKNOWN INDICATION
     Dosage: UNK
     Route: 065
     Dates: start: 20160218
  9. SIGMART [Concomitant]
     Active Substance: NICORANDIL
     Indication: PRODUCT USED FOR UNKNOWN INDICATION
     Dosage: UNK
     Route: 065
     Dates: start: 20160108
  10. SANDIMMUN INFUSION [Suspect]
     Active Substance: CYCLOSPORINE
     Indication: DERMATOMYOSITIS
     Dosage: UNK
     Route: 041
     Dates: start: 20151211, end: 20160410
  11. CICLOSPORIN [Suspect]
     Active Substance: CYCLOSPORINE
     Indication: DERMATOMYOSITIS
     Dosage: UNK
     Route: 042
  12. PREDNISOLON [Suspect]
     Active Substance: PREDNISOLONE
     Dosage: 40 MG, UNK
     Route: 048
     Dates: start: 20160210, end: 20160224
  13. PREDNISOLON [Suspect]
     Active Substance: PREDNISOLONE
     Dosage: 35 MG, UNK
     Route: 048
     Dates: start: 20160225, end: 20160309
  14. PREDNISOLON [Suspect]
     Active Substance: PREDNISOLONE
     Dosage: 27.5 MG, UNK
     Route: 048
     Dates: start: 20160510, end: 20160524
  15. NEXIUM [Concomitant]
     Active Substance: ESOMEPRAZOLE MAGNESIUM
     Indication: PRODUCT USED FOR UNKNOWN INDICATION
     Dosage: UNK
     Route: 065
     Dates: start: 20151215
  16. TOFACITINIB CITRATE [Suspect]
     Active Substance: TOFACITINIB CITRATE
     Indication: RHEUMATOID ARTHRITIS
     Dosage: 5 MG, BID
     Route: 048
     Dates: start: 20151217, end: 20160525
  17. PREDNISOLON [Suspect]
     Active Substance: PREDNISOLONE
     Dosage: 60 MG, UNK
     Route: 048
     Dates: start: 20151214, end: 20160124
  18. PREDNISOLON [Suspect]
     Active Substance: PREDNISOLONE
     Dosage: 18 MG, UNK
     Route: 048
     Dates: start: 20160730, end: 20160828
  19. EDIROL [Concomitant]
     Active Substance: ELDECALCITOL
     Indication: PRODUCT USED FOR UNKNOWN INDICATION
     Dosage: UNK
     Route: 065
     Dates: start: 20151225
  20. BAKTAR [Concomitant]
     Active Substance: SULFAMETHOXAZOLE\TRIMETHOPRIM
     Indication: PRODUCT USED FOR UNKNOWN INDICATION
     Dosage: UNK
     Route: 065
     Dates: start: 20151225
  21. TOFACITINIB CITRATE [Suspect]
     Active Substance: TOFACITINIB CITRATE
     Dosage: 5 MG, QOD
     Route: 048
     Dates: start: 20160630
  22. DENOSINE [Concomitant]
     Active Substance: GANCICLOVIR
     Indication: PRODUCT USED FOR UNKNOWN INDICATION
     Dosage: UNK
     Route: 065
     Dates: start: 20160114
  23. MAINTATE [Concomitant]
     Active Substance: BISOPROLOL FUMARATE
     Indication: PRODUCT USED FOR UNKNOWN INDICATION
     Dosage: UNK
     Route: 065
     Dates: start: 20160127
  24. LIPIDIL [Concomitant]
     Active Substance: FENOFIBRATE
     Indication: PRODUCT USED FOR UNKNOWN INDICATION
     Dosage: UNK
     Route: 065
     Dates: start: 20160524
  25. PREDNISOLON [Suspect]
     Active Substance: PREDNISOLONE
     Dosage: 30 MG, UNK
     Route: 048
     Dates: start: 20160310, end: 20160509
  26. PREDNISOLON [Suspect]
     Active Substance: PREDNISOLONE
     Dosage: 20 MG, UNK
     Route: 048
     Dates: start: 20160622, end: 20160729
  27. PREDNISOLON [Suspect]
     Active Substance: PREDNISOLONE
     Dosage: 13 MG, UNK
     Route: 048
     Dates: start: 20161031, end: 20161128
  28. HALIZON [Concomitant]
     Active Substance: AMPHOTERICIN B
     Indication: PRODUCT USED FOR UNKNOWN INDICATION
     Dosage: UNK
     Route: 048
     Dates: start: 20151220
  29. PREDNISOLON [Suspect]
     Active Substance: PREDNISOLONE
     Indication: PRODUCT USED FOR UNKNOWN INDICATION
     Dosage: 5 MG, UNK
     Route: 048
     Dates: end: 20151203
  30. PREDNISOLON [Suspect]
     Active Substance: PREDNISOLONE
     Dosage: 10 MG, UNK
     Route: 048
     Dates: start: 20151204, end: 201512
  31. PREDNISOLON [Suspect]
     Active Substance: PREDNISOLONE
     Dosage: 22.5 MG, UNK
     Route: 048
     Dates: start: 20160608, end: 20160621
  32. PREDNISOLON [Suspect]
     Active Substance: PREDNISOLONE
     Dosage: 14 MG, UNK
     Route: 048
     Dates: start: 20161003, end: 20161030
  33. NU-LOTAN [Concomitant]
     Active Substance: LOSARTAN POTASSIUM
     Indication: PRODUCT USED FOR UNKNOWN INDICATION
     Dosage: UNK
     Route: 065
     Dates: start: 20160127
  34. AMLODIPINE [Concomitant]
     Active Substance: AMLODIPINE BESYLATE
     Indication: PRODUCT USED FOR UNKNOWN INDICATION
     Dosage: UNK
     Route: 065
     Dates: start: 20160212
  35. VALIXA [Concomitant]
     Active Substance: VALGANCICLOVIR
     Indication: PRODUCT USED FOR UNKNOWN INDICATION
     Dosage: UNK
     Route: 065
     Dates: start: 20160428

REACTIONS (4)
  - Dyslipidaemia [Recovering/Resolving]
  - Herpes zoster [Recovering/Resolving]
  - Product use in unapproved indication [Unknown]
  - Cytomegalovirus infection [Recovering/Resolving]

NARRATIVE: CASE EVENT DATE: 20160114
